APPROVED DRUG PRODUCT: DILTIAZEM HYDROCHLORIDE
Active Ingredient: DILTIAZEM HYDROCHLORIDE
Strength: 30MG
Dosage Form/Route: TABLET;ORAL
Application: A219253 | Product #001
Applicant: ZYDUS LIFESCIENCES GLOBAL FZE
Approved: Aug 8, 2025 | RLD: No | RS: No | Type: DISCN